FAERS Safety Report 7929115-8 (Version None)
Quarter: 2011Q4

REPORT INFORMATION
  Report Type: 
  Country: None (occurrence: None)
  Receive Date: 20111119
  Receipt Date: 20111114
  Transmission Date: 20120403
  Serious: Yes (Life-Threatening, Hospitalization, Other)
  Sender: FDA-Public Use
  Company Number: GB-ASTRAZENECA-2011SE61186

PATIENT
  Age: 73 Year
  Sex: Male

DRUGS (11)
  1. SIMVASTATIN [Concomitant]
  2. OMEPRAZOLE [Suspect]
     Indication: OESOPHAGITIS
     Route: 048
     Dates: start: 20110228, end: 20111004
  3. FERROUS FUMARATE [Concomitant]
  4. ADIZEM XL [Concomitant]
  5. LISINOPRIL [Concomitant]
  6. ASPIRIN [Concomitant]
  7. LACTULOSE [Concomitant]
  8. SENOKOT [Concomitant]
  9. WARFARIN SODIUM [Concomitant]
     Indication: ANEURYSM
  10. RANITIDINE [Concomitant]
  11. SPIRONOLACTONE [Concomitant]

REACTIONS (16)
  - C-REACTIVE PROTEIN INCREASED [None]
  - MALAISE [None]
  - RENAL FAILURE ACUTE [None]
  - FATIGUE [None]
  - HYPOPHAGIA [None]
  - NEPHROPATHY [None]
  - BODY TEMPERATURE INCREASED [None]
  - TUBULOINTERSTITIAL NEPHRITIS [None]
  - BLOOD CREATININE INCREASED [None]
  - WHITE BLOOD CELL COUNT INCREASED [None]
  - SEPSIS [None]
  - DECREASED APPETITE [None]
  - HYPERKALAEMIA [None]
  - ALANINE AMINOTRANSFERASE INCREASED [None]
  - MYALGIA [None]
  - HYPOTENSION [None]
